FAERS Safety Report 4959674-9 (Version None)
Quarter: 2006Q1

REPORT INFORMATION
  Report Type: 
  Country: None (occurrence: None)
  Receive Date: 20060331
  Receipt Date: 20060303
  Transmission Date: 20060701
  Serious: Yes (Life-Threatening, Hospitalization, Disabling)
  Sender: FDA-Public Use
  Company Number: PHRM2006FR00965

PATIENT
  Age: 67 Year
  Sex: Male
  Weight: 73 kg

DRUGS (1)
  1. TAREG [Suspect]
     Indication: HYPERTENSION
     Dosage: 80 MG/DAY
     Route: 048
     Dates: start: 20051207, end: 20051220

REACTIONS (3)
  - CEREBROVASCULAR ACCIDENT [None]
  - ISCHAEMIC STROKE [None]
  - VISUAL ACUITY REDUCED [None]
